FAERS Safety Report 8294161-4 (Version None)
Quarter: 2012Q2

REPORT INFORMATION
  Report Type: 
  Country: None (occurrence: None)
  Receive Date: 20120418
  Receipt Date: 20120413
  Transmission Date: 20120825
  Serious: Yes (Death, Hospitalization, Disabling)
  Sender: FDA-Public Use
  Company Number: PHHY2011JP113119

PATIENT
  Sex: Female

DRUGS (8)
  1. IMATINIB MESYLATE [Suspect]
     Indication: GASTROINTESTINAL STROMAL TUMOUR
     Dosage: 400 MG, DAILY
     Route: 048
     Dates: start: 20050402, end: 20051126
  2. IMATINIB MESYLATE [Suspect]
     Dosage: 300 MG, DAILY
     Route: 048
     Dates: start: 20051127, end: 20051213
  3. IMATINIB MESYLATE [Suspect]
     Dosage: 300 MG, DAILY
     Route: 048
     Dates: start: 20080409, end: 20080521
  4. IMATINIB MESYLATE [Suspect]
     Dosage: 200 MG, DAILY
     Route: 048
     Dates: start: 20090422, end: 20091007
  5. IMATINIB MESYLATE [Suspect]
     Dosage: 400 MG, DAILY
     Route: 048
     Dates: start: 20051214, end: 20060301
  6. IMATINIB MESYLATE [Suspect]
     Dosage: 300 MG,DAILY
     Route: 048
     Dates: start: 20081105, end: 20090407
  7. IMATINIB MESYLATE [Suspect]
     Dosage: 300 MG, DAILY
     Route: 048
     Dates: start: 20080530, end: 20081021
  8. IMATINIB MESYLATE [Suspect]
     Dosage: 300 MG, DAILY
     Route: 048
     Dates: start: 20060315

REACTIONS (3)
  - NEOPLASM MALIGNANT [None]
  - NEOPLASM PROGRESSION [None]
  - CEREBRAL INFARCTION [None]
